FAERS Safety Report 25110787 (Version 1)
Quarter: 2025Q1

REPORT INFORMATION
  Report Type: Spontaneous
  Country: US (occurrence: US)
  Receive Date: 20250324
  Receipt Date: 20250324
  Transmission Date: 20250409
  Serious: No
  Sender: EYWA PHARMA INC.
  Company Number: US-Eywa Pharma Inc.-2173519

PATIENT

DRUGS (6)
  1. BACLOFEN [Suspect]
     Active Substance: BACLOFEN
     Indication: Headache
  2. BACLOFEN [Suspect]
     Active Substance: BACLOFEN
     Indication: Neck pain
  3. TYLENOL [Concomitant]
     Active Substance: ACETAMINOPHEN
  4. LIDOCAINE [Concomitant]
     Active Substance: LIDOCAINE
  5. MELATONIN [Concomitant]
     Active Substance: MELATONIN
  6. BENADRYL [Concomitant]
     Active Substance: DIPHENHYDRAMINE HYDROCHLORIDE

REACTIONS (1)
  - Drug ineffective [Unknown]
